FAERS Safety Report 4500533-3 (Version None)
Quarter: 2004Q4

REPORT INFORMATION
  Report Type: 
  Country: None (occurrence: None)
  Receive Date: 20041109
  Receipt Date: 20041025
  Transmission Date: 20050328
  Serious: Yes (Disabling)
  Sender: FDA-Public Use
  Company Number: 20869

PATIENT
  Age: 71 Year
  Sex: Male
  Weight: 78.9259 kg

DRUGS (4)
  1. NIASPAN [Suspect]
     Indication: BLOOD CHOLESTEROL INCREASED
     Dosage: 1000 MG QAM PO
     Route: 048
     Dates: start: 20040801
  2. PLAVIX [Suspect]
     Indication: THROMBOSIS PROPHYLAXIS
  3. LIPITOR [Concomitant]
  4. ATENOLOL [Concomitant]

REACTIONS (2)
  - DEAFNESS UNILATERAL [None]
  - DRUG INTERACTION [None]
